FAERS Safety Report 9615373 (Version 3)
Quarter: 2014Q2

REPORT INFORMATION
  Report Type: Spontaneous
  Country: US (occurrence: US)
  Receive Date: 20131011
  Receipt Date: 20140422
  Transmission Date: 20141212
  Serious: Yes (Hospitalization, Disabling)
  Sender: FDA-Public Use
  Company Number: US-ASTRAZENECA-2011SE41532

PATIENT
  Age: 59 Year
  Sex: Female
  Weight: 131.5 kg

DRUGS (10)
  1. NEXIUM [Suspect]
     Indication: GASTROOESOPHAGEAL REFLUX DISEASE
     Route: 048
     Dates: start: 2001
  2. NEXIUM [Suspect]
     Indication: GASTROOESOPHAGEAL REFLUX DISEASE
     Route: 048
     Dates: start: 20110726
  3. DEXILANT [Concomitant]
     Indication: GASTROOESOPHAGEAL REFLUX DISEASE
  4. ESTROGEN [Concomitant]
  5. PREDNISONE [Concomitant]
     Route: 048
     Dates: start: 20110517
  6. PREVACID [Concomitant]
     Dates: start: 20041019
  7. FOLIC ACID [Concomitant]
  8. TOPIRAMATE [Concomitant]
     Route: 048
     Dates: start: 20111224
  9. MELOXICAM [Concomitant]
     Route: 048
     Dates: start: 20120513
  10. POTASSIUM CL [Concomitant]
     Route: 048
     Dates: start: 20110722

REACTIONS (15)
  - Upper respiratory tract infection [Unknown]
  - Arthropathy [Unknown]
  - Carpal tunnel syndrome [Unknown]
  - Osteoporosis [Unknown]
  - Foot fracture [Unknown]
  - Multiple fractures [Unknown]
  - Fall [Unknown]
  - Pyrexia [Unknown]
  - Gastric disorder [Unknown]
  - Renal disorder [Unknown]
  - Chronic obstructive pulmonary disease [Unknown]
  - Rheumatoid arthritis [Unknown]
  - Cataract [Unknown]
  - Glaucoma [Unknown]
  - Osteoarthritis [Unknown]
